FAERS Safety Report 7876772-0 (Version None)
Quarter: 2011Q4

REPORT INFORMATION
  Report Type: 
  Country: None (occurrence: None)
  Receive Date: 20111031
  Receipt Date: 20111018
  Transmission Date: 20120403
  Serious: Yes (Hospitalization, Other)
  Sender: FDA-Public Use
  Company Number: US-BAYER-2010-008973

PATIENT
  Age: 41 Year
  Sex: Female
  Weight: 63.6 kg

DRUGS (10)
  1. YASMIN [Suspect]
     Indication: CONTRACEPTION
     Dosage: UNK
     Dates: start: 20020724, end: 20090901
  2. AMBIEN [Concomitant]
     Indication: INSOMNIA
     Dosage: 5 MG, UNK
     Route: 048
     Dates: start: 20050101
  3. PREMESISRX [Concomitant]
     Dosage: UNK
     Route: 048
     Dates: start: 20090826
  4. IMITREX [Concomitant]
     Dosage: 100 MG, UNK
     Route: 048
     Dates: end: 20090909
  5. AXERT [Concomitant]
     Dosage: UNK
     Dates: end: 20090910
  6. DIAZEPAM [Concomitant]
     Dosage: 2 MG, PRN
     Route: 048
     Dates: start: 20090826
  7. YAZ [Suspect]
     Indication: CONTRACEPTION
     Dosage: UNK
     Dates: start: 20020724, end: 20090901
  8. LEXAPRO [Concomitant]
     Indication: MIGRAINE
     Dosage: 20 MG, QD
     Route: 048
     Dates: start: 20050101
  9. PATANOL [Concomitant]
     Route: 061
  10. FIORINAL [Concomitant]
     Dosage: UNK
     Dates: end: 20090912

REACTIONS (18)
  - CEREBROVASCULAR ACCIDENT [None]
  - NERVOUS SYSTEM DISORDER [None]
  - DEPRESSION [None]
  - GRAND MAL CONVULSION [None]
  - COGNITIVE DISORDER [None]
  - MIGRAINE [None]
  - TRANSVERSE SINUS THROMBOSIS [None]
  - CEREBRAL THROMBOSIS [None]
  - PELVIC VENOUS THROMBOSIS [None]
  - PAIN [None]
  - GAIT DISTURBANCE [None]
  - SPEECH DISORDER [None]
  - BRAIN INJURY [None]
  - AMNESIA [None]
  - CEREBRAL HAEMORRHAGE [None]
  - THROMBOSIS [None]
  - EMOTIONAL DISTRESS [None]
  - BALANCE DISORDER [None]
